FAERS Safety Report 9444817 (Version 1)
Quarter: 2013Q3

REPORT INFORMATION
  Report Type: Spontaneous
  Country: US (occurrence: US)
  Receive Date: 20130807
  Receipt Date: 20130807
  Transmission Date: 20140515
  Serious: No
  Sender: FDA-Public Use
  Company Number: US-US-EMD SERONO, INC.-7140351

PATIENT
  Sex: Female
  Weight: 55 kg

DRUGS (1)
  1. REBIF [Suspect]
     Indication: PRODUCT USED FOR UNKNOWN INDICATION
     Route: 058
     Dates: start: 20051018

REACTIONS (4)
  - Breast cyst [Recovering/Resolving]
  - Injection site erythema [Recovering/Resolving]
  - Injection site reaction [Not Recovered/Not Resolved]
  - Myalgia [Recovering/Resolving]
